FAERS Safety Report 24869637 (Version 1)
Quarter: 2025Q1

REPORT INFORMATION
  Report Type: Spontaneous
  Country: GB (occurrence: GB)
  Receive Date: 20250121
  Receipt Date: 20250121
  Transmission Date: 20250408
  Serious: Yes (Hospitalization)
  Sender: B BRAUN
  Company Number: GB-B.Braun Medical Inc.-2169473

PATIENT
  Age: 37 Year
  Sex: Female
  Weight: 85 kg

DRUGS (3)
  1. METRONIDAZOLE [Suspect]
     Active Substance: METRONIDAZOLE
     Indication: Tooth abscess
     Dates: start: 20250106, end: 20250107
  2. SERTRALINE [Concomitant]
     Active Substance: SERTRALINE HYDROCHLORIDE
  3. TERBINAFINE [Concomitant]
     Active Substance: TERBINAFINE

REACTIONS (2)
  - Chest pain [Recovering/Resolving]
  - Off label use [Recovering/Resolving]
